FAERS Safety Report 13401596 (Version 2)
Quarter: 2017Q2

REPORT INFORMATION
  Report Type: Spontaneous
  Country: FR (occurrence: FR)
  Receive Date: 20170404
  Receipt Date: 20170417
  Transmission Date: 20170830
  Serious: Yes (Hospitalization)
  Sender: FDA-Public Use
  Company Number: FR-PFIZER INC-2017143507

PATIENT
  Age: 68 Year
  Sex: Female

DRUGS (8)
  1. IXPRIM [Suspect]
     Active Substance: ACETAMINOPHEN\TRAMADOL HYDROCHLORIDE
     Indication: BACK PAIN
     Dosage: 37.5/325 MG EVERY 6 HOURS
     Route: 048
     Dates: start: 20170118, end: 20170125
  2. DOLIPRANE [Concomitant]
     Active Substance: ACETAMINOPHEN
     Dosage: 500 MG, UNK
     Dates: start: 20170118
  3. LUMIRELAX [Suspect]
     Active Substance: METHOCARBAMOL
     Indication: MUSCLE TWITCHING
     Dosage: 500 MG, 2X/DAY
     Route: 048
     Dates: start: 20170118, end: 20170125
  4. OMEPRAZOLE. [Suspect]
     Active Substance: OMEPRAZOLE
     Dosage: 10 MG, 1X/DAY AT NIGHT
     Route: 048
  5. VOLTARENE [Suspect]
     Active Substance: DICLOFENAC SODIUM
     Indication: INFLAMMATORY PAIN
     Dosage: 75 MG, 2X/DAY
     Route: 048
     Dates: start: 20170118, end: 20170125
  6. TENORMIN [Suspect]
     Active Substance: ATENOLOL
     Indication: HYPERTENSION
     Dosage: 50 MG, 1X/DAY
     Route: 048
     Dates: start: 1977
  7. DIAMICRON [Suspect]
     Active Substance: GLICLAZIDE
     Indication: TYPE 2 DIABETES MELLITUS
     Dosage: 60 MG, 1X/DAY
     Route: 048
     Dates: start: 20150905
  8. GALVUS [Suspect]
     Active Substance: VILDAGLIPTIN
     Indication: TYPE 2 DIABETES MELLITUS
     Dosage: 500 MG, 2X/DAY
     Route: 048
     Dates: start: 201008, end: 20170207

REACTIONS (2)
  - Back pain [Unknown]
  - Pemphigoid [Recovering/Resolving]

NARRATIVE: CASE EVENT DATE: 20170109
